FAERS Safety Report 9869881 (Version 1)
Quarter: 2014Q1

REPORT INFORMATION
  Report Type: Spontaneous
  Country: GB (occurrence: None)
  Receive Date: 20140131
  Receipt Date: 20140131
  Transmission Date: 20141002
  Serious: Yes (Life-Threatening, Other)
  Sender: FDA-Public Use
  Company Number: AUR-APL-2014-00783

PATIENT
  Age: 22 Year
  Sex: Male
  Weight: 136 kg

DRUGS (3)
  1. OLANZAPINE (OLANZAPINE) [Suspect]
     Route: 048
     Dates: start: 201310, end: 20131025
  2. ARIPIPRAZOLE (ARIPIPRAZOLE) [Suspect]
     Route: 048
     Dates: start: 20130621, end: 20131025
  3. DIAZEPAM (DIAZEPAM) [Concomitant]

REACTIONS (1)
  - Myocarditis [None]
